FAERS Safety Report 25230786 (Version 1)
Quarter: 2025Q2

REPORT INFORMATION
  Report Type: Spontaneous
  Country: US (occurrence: US)
  Receive Date: 20250423
  Receipt Date: 20250423
  Transmission Date: 20250716
  Serious: No
  Sender: SANOFI AVENTIS
  Company Number: US-SA-2025SA116834

PATIENT
  Age: 70 Year
  Sex: Female
  Weight: 88.45 kg

DRUGS (9)
  1. DUPIXENT [Suspect]
     Active Substance: DUPILUMAB
     Indication: Dermatitis atopic
     Dosage: 300 MG, QOW
     Route: 058
     Dates: start: 2017
  2. FISH OIL [Concomitant]
     Active Substance: FISH OIL
  3. VITAMINS NOS [Concomitant]
     Active Substance: VITAMINS
  4. CORTISONE [Concomitant]
     Active Substance: CORTISONE
  5. ZADITOR [Concomitant]
     Active Substance: KETOTIFEN FUMARATE
  6. ERGOCALCIFEROL [Concomitant]
     Active Substance: ERGOCALCIFEROL
  7. CLARITIN-D NOS [Concomitant]
     Active Substance: LORATADINE\PSEUDOEPHEDRINE SULFATE
  8. ZYRTEC [Concomitant]
     Active Substance: CETIRIZINE HYDROCHLORIDE
  9. ARMOUR THYROID [Concomitant]
     Active Substance: THYROID, PORCINE

REACTIONS (2)
  - Eye irritation [Not Recovered/Not Resolved]
  - Injection site pain [Not Recovered/Not Resolved]
